FAERS Safety Report 6533686-6 (Version None)
Quarter: 2010Q1

REPORT INFORMATION
  Report Type: 
  Country: None (occurrence: None)
  Receive Date: 20100108
  Receipt Date: 20100108
  Transmission Date: 20100710
  Serious: Yes (Hospitalization)
  Sender: FDA-Public Use
  Company Number: None

PATIENT
  Age: 71 Year
  Sex: Male
  Weight: 108.7 kg

DRUGS (4)
  1. OXALIPLATIN [Suspect]
     Indication: BILE DUCT CANCER
     Dosage: 85MG/M2 Q 14 DAYS IV
     Route: 042
     Dates: start: 20090202
  2. SORAFENIB 200 MG TAB BAYER [Suspect]
     Indication: BILE DUCT CANCER
     Dosage: 200 MG QOD INJ
     Dates: start: 20090202
  3. XELODA [Concomitant]
  4. OXALIPLATIN ADMINISTRATION [Concomitant]

REACTIONS (2)
  - CATHETER SITE INFECTION [None]
  - SEPSIS [None]
